FAERS Safety Report 20674686 (Version 1)
Quarter: 2022Q2

REPORT INFORMATION
  Report Type: Report from Study
  Country: US (occurrence: US)
  Receive Date: 20220405
  Receipt Date: 20220405
  Transmission Date: 20220721
  Serious: Yes (Other)
  Sender: FDA-Public Use
  Company Number: US-JNJFOC-20220364678

PATIENT

DRUGS (4)
  1. RILPIVIRINE [Suspect]
     Active Substance: RILPIVIRINE
     Indication: HIV infection
     Dosage: DOSED EVERY 8 WEEKS (Q8W) COMPARED WITH EVERY 4 WEEKS (Q4W)
     Route: 030
  2. RILPIVIRINE [Suspect]
     Active Substance: RILPIVIRINE
     Indication: Hepatitis C
  3. CABOTEGRAVIR [Suspect]
     Active Substance: CABOTEGRAVIR
     Indication: HIV infection
     Dosage: DOSED EVERY 8 WEEKS (Q8W) COMPARED WITH EVERY 4 WEEKS (Q4W)
     Route: 030
  4. CABOTEGRAVIR [Suspect]
     Active Substance: CABOTEGRAVIR
     Indication: Hepatitis C

REACTIONS (3)
  - Adverse event [Unknown]
  - Injection site reaction [Unknown]
  - Injection site pain [Unknown]
